FAERS Safety Report 7479204-X (Version None)
Quarter: 2011Q2

REPORT INFORMATION
  Report Type: 
  Country: None (occurrence: None)
  Receive Date: 20110513
  Receipt Date: 20110505
  Transmission Date: 20111010
  Serious: Yes (Other)
  Sender: FDA-Public Use
  Company Number: A0926223A

PATIENT
  Sex: Female

DRUGS (6)
  1. XELODA [Suspect]
     Route: 065
  2. MORPHINE [Concomitant]
  3. LYRICA [Concomitant]
  4. TYKERB [Suspect]
     Dosage: 1250MG PER DAY
     Route: 048
     Dates: start: 20110405
  5. ANTI-HISTAMINE [Concomitant]
  6. ATARAX [Concomitant]

REACTIONS (1)
  - BREAST CANCER METASTATIC [None]
